FAERS Safety Report 24593246 (Version 1)
Quarter: 2024Q4

REPORT INFORMATION
  Report Type: Spontaneous
  Country: US (occurrence: None)
  Receive Date: 20241107
  Receipt Date: 20241107
  Transmission Date: 20250115
  Serious: Yes (Other)
  Sender: Public
  Company Number: None

PATIENT
  Age: 78 Year
  Sex: Female
  Weight: 64.8 kg

DRUGS (10)
  1. CITALOPRAM [Suspect]
     Active Substance: CITALOPRAM
     Indication: Depression
     Dosage: OTHER QUANTITY : 30 TABLET(S);?FREQUENCY : DAILY;?
     Route: 048
     Dates: start: 20231213, end: 20231215
  2. CITALOPRAM [Suspect]
     Active Substance: CITALOPRAM
     Indication: Anxiety
  3. CITALOPRAM [Suspect]
     Active Substance: CITALOPRAM
     Indication: Product substitution
  4. ALPRAZOLAM [Suspect]
     Active Substance: ALPRAZOLAM
  5. Levothorexine [Concomitant]
  6. CLONAZEPAM [Concomitant]
     Active Substance: CLONAZEPAM
  7. ESTRADIOL [Concomitant]
     Active Substance: ESTRADIOL
  8. CALCIUM [Concomitant]
     Active Substance: CALCIUM
  9. VITAMIN D3 [Concomitant]
     Active Substance: CHOLECALCIFEROL
  10. multi-vitamin 50 plus [Concomitant]

REACTIONS (7)
  - Rectal haemorrhage [None]
  - Headache [None]
  - Confusional state [None]
  - Hyperhidrosis [None]
  - Brain fog [None]
  - Abdominal pain [None]
  - Irritable bowel syndrome [None]

NARRATIVE: CASE EVENT DATE: 20241106
